FAERS Safety Report 4329815-5 (Version None)
Quarter: 2004Q1

REPORT INFORMATION
  Report Type: 
  Country: None (occurrence: None)
  Receive Date: 20040329
  Receipt Date: 20040315
  Transmission Date: 20041129
  Serious: Yes (Other)
  Sender: FDA-Public Use
  Company Number: 2004018226

PATIENT
  Age: 75 Year
  Sex: Female

DRUGS (2)
  1. SULPERAZON (CEFOPERAZONE, SULBACTAM) [Suspect]
     Indication: ILL-DEFINED DISORDER
     Dosage: INTRAVENOUS
     Route: 042
  2. ALL OTHER THERAPEUTIC PRODCUTS [Suspect]
     Indication: ILL-DEFINED DISORDER

REACTIONS (1)
  - HEPATITIS FULMINANT [None]
